FAERS Safety Report 8592709-3 (Version None)
Quarter: 2012Q3

REPORT INFORMATION
  Report Type: 
  Country: None (occurrence: None)
  Receive Date: 20120814
  Receipt Date: 20120710
  Transmission Date: 20120928
  Serious: No
  Sender: FDA-Public Use
  Company Number: US-COVIDIEN/TYCO HEALTHCARE/MALLINCKRODT-T201202678

PATIENT
  Sex: Male

DRUGS (11)
  1. ARICEPT [Concomitant]
  2. MIRALAX                            /00754501/ [Concomitant]
  3. FINASTERIDE [Concomitant]
  4. SIMVASTATIN [Concomitant]
  5. ASPERCREME [Concomitant]
  6. BUPROPROIN [Concomitant]
  7. TAMSULOSIN HCL [Concomitant]
  8. FENTANYL [Suspect]
     Indication: BACK PAIN
     Dosage: 25 UG/HR, EVERY 72 HOURS
     Route: 062
     Dates: start: 20120621
  9. NORCO [Concomitant]
  10. GABAPENTIN [Concomitant]
  11. OMEPRAZOLE [Concomitant]

REACTIONS (3)
  - COUGH [None]
  - BODY TEMPERATURE INCREASED [None]
  - INCREASED UPPER AIRWAY SECRETION [None]
